FAERS Safety Report 7820691-2 (Version None)
Quarter: 2011Q4

REPORT INFORMATION
  Report Type: 
  Country: None (occurrence: None)
  Receive Date: 20111018
  Receipt Date: 20111004
  Transmission Date: 20120403
  Serious: Yes (Hospitalization, Other)
  Sender: FDA-Public Use
  Company Number: US-PAR PHARMACEUTICAL, INC-2011SCPR003277

PATIENT

DRUGS (1)
  1. VERAPAMIL HCL [Suspect]
     Indication: PRODUCT USED FOR UNKNOWN INDICATION
     Dosage: 80 DF, UNKNOWN
     Route: 048

REACTIONS (13)
  - SUICIDE ATTEMPT [None]
  - ATRIOVENTRICULAR BLOCK COMPLETE [None]
  - BLOOD CALCIUM INCREASED [None]
  - ARTERIAL THROMBOSIS LIMB [None]
  - INTENTIONAL OVERDOSE [None]
  - METABOLIC ACIDOSIS [None]
  - RENAL FAILURE [None]
  - SINUS TACHYCARDIA [None]
  - ACUTE RESPIRATORY FAILURE [None]
  - FLUID OVERLOAD [None]
  - COLITIS ISCHAEMIC [None]
  - URINARY TRACT INFECTION STAPHYLOCOCCAL [None]
  - LEUKOCYTOSIS [None]
